FAERS Safety Report 20422134 (Version 2)
Quarter: 2022Q2

REPORT INFORMATION
  Report Type: Spontaneous
  Country: US (occurrence: US)
  Receive Date: 20220203
  Receipt Date: 20220415
  Transmission Date: 20220720
  Serious: Yes (Hospitalization)
  Sender: FDA-Public Use
  Company Number: US-PARI RESPIRATORY EQUIPMENT, INC.-2022PAR00007

PATIENT
  Age: 2 Year
  Sex: Female

DRUGS (3)
  1. KITABIS PAK [Suspect]
     Active Substance: TOBRAMYCIN
     Indication: Cystic fibrosis
     Dosage: INHALE 300 MG/5 ML INTO THE LUNGS, VIA NEBULIZER,  2X/DAY, USE 28 DAYS ON AND 28 DAYS OFF
     Dates: start: 20220120
  2. KITABIS PAK [Suspect]
     Active Substance: TOBRAMYCIN
     Indication: Lung disorder
  3. COMPLETE FORMULATION PEDI [Concomitant]

REACTIONS (3)
  - Pneumonia [Unknown]
  - Urinary tract infection [Not Recovered/Not Resolved]
  - Off label use [Not Recovered/Not Resolved]

NARRATIVE: CASE EVENT DATE: 20220101
